FAERS Safety Report 24421988 (Version 1)
Quarter: 2024Q4

REPORT INFORMATION
  Report Type: Spontaneous
  Country: US (occurrence: US)
  Receive Date: 20241010
  Receipt Date: 20241010
  Transmission Date: 20250114
  Serious: Yes (Death, Other)
  Sender: PROCTER AND GAMBLE
  Company Number: US-PROCTER+GAMBLE-PH24007588

PATIENT
  Age: 13 Year

DRUGS (2)
  1. DIPHENHYDRAMINE HYDROCHLORIDE [Suspect]
     Active Substance: DIPHENHYDRAMINE HYDROCHLORIDE
     Dosage: UNK
  2. BISMUTH SUBSALICYLATE [Suspect]
     Active Substance: BISMUTH SUBSALICYLATE
     Dosage: UNK

REACTIONS (13)
  - Toxicity to various agents [Fatal]
  - Brain death [Fatal]
  - Cardiac arrest [Fatal]
  - Coma [Fatal]
  - Depressed level of consciousness [Fatal]
  - Electrocardiogram QRS complex prolonged [Fatal]
  - Electrocardiogram QT prolonged [Fatal]
  - Rhabdomyolysis [Fatal]
  - Respiratory depression [Fatal]
  - Seizure [Fatal]
  - Hypotension [Fatal]
  - Metabolic acidosis [Fatal]
  - Tachycardia [Fatal]
